FAERS Safety Report 4303485-4 (Version None)
Quarter: 2004Q1

REPORT INFORMATION
  Report Type: 
  Country: None (occurrence: None)
  Receive Date: 20040223
  Receipt Date: 20040210
  Transmission Date: 20041129
  Serious: Yes (Other)
  Sender: FDA-Public Use
  Company Number: 2004008674

PATIENT
  Sex: Female

DRUGS (1)
  1. ZOLOFT [Suspect]
     Indication: ANXIETY
     Dosage: 50 MG (DAILY), ORAL
     Route: 048
     Dates: start: 20040101

REACTIONS (3)
  - CIRCULATORY COLLAPSE [None]
  - COMA [None]
  - CONVULSION [None]
